FAERS Safety Report 6409769-8 (Version None)
Quarter: 2009Q4

REPORT INFORMATION
  Report Type: 
  Country: None (occurrence: None)
  Receive Date: 20091022
  Receipt Date: 20091013
  Transmission Date: 20100525
  Serious: Yes (Disabling, Other)
  Sender: FDA-Public Use
  Company Number: GB-ASTRAZENECA-2009SE19779

PATIENT
  Age: 60 Year
  Sex: Female
  Weight: 99 kg

DRUGS (6)
  1. NEXIUM [Suspect]
     Indication: GASTRIC ULCER
     Route: 048
     Dates: start: 20090905, end: 20090908
  2. PREDNISOLONE [Concomitant]
     Route: 048
     Dates: start: 20090701
  3. ALBUTEROL [Concomitant]
     Route: 048
  4. ALBUTEROL [Concomitant]
  5. SERETIDE [Concomitant]
     Route: 048
  6. TIOTROPIUM BROMIDE [Concomitant]
     Route: 048

REACTIONS (2)
  - GLOSSITIS [None]
  - STOMATITIS [None]
